FAERS Safety Report 9335354 (Version 2)
Quarter: 2014Q2

REPORT INFORMATION
  Report Type: Report from Study
  Country: JP (occurrence: JP)
  Receive Date: 20130606
  Receipt Date: 20140402
  Transmission Date: 20141212
  Serious: Yes (Other)
  Sender: FDA-Public Use
  Company Number: JP-US-EMD SERONO, INC.-7193475

PATIENT
  Sex: Female
  Weight: 48 kg

DRUGS (6)
  1. GONAL-F RFF PEN [Suspect]
     Indication: OVULATION INDUCTION
     Route: 058
     Dates: start: 20100106, end: 20100109
  2. GONAL-F RFF PEN [Suspect]
     Route: 058
     Dates: start: 20100110, end: 20100110
  3. HCG [Concomitant]
     Indication: OVULATION INDUCTION
     Route: 030
     Dates: start: 20100114, end: 20100114
  4. HMG                                /01277604/ [Concomitant]
     Indication: OVULATION INDUCTION
     Route: 030
     Dates: start: 20100111, end: 20100111
  5. HMG                                /01277604/ [Concomitant]
     Route: 030
     Dates: start: 20100112, end: 20100113
  6. HMG                                /01277604/ [Concomitant]
     Route: 030
     Dates: start: 20100114, end: 20100114

REACTIONS (1)
  - Abortion missed [Unknown]
